FAERS Safety Report 14686334 (Version 2)
Quarter: 2018Q3

REPORT INFORMATION
  Report Type: Report from Study
  Country: US (occurrence: US)
  Receive Date: 20180327
  Receipt Date: 20180820
  Transmission Date: 20181010
  Serious: Yes (Other)
  Sender: FDA-Public Use
  Company Number: US-TAKEDA-2018TUS007047

PATIENT
  Sex: Male

DRUGS (1)
  1. PONATINIB [Suspect]
     Active Substance: PONATINIB
     Indication: CHRONIC MYELOID LEUKAEMIA
     Dosage: 30 MG, QD
     Route: 048
     Dates: start: 20170227

REACTIONS (16)
  - Pain in extremity [Unknown]
  - White blood cell count increased [Unknown]
  - Butterfly rash [Unknown]
  - General physical health deterioration [Unknown]
  - Increased appetite [Unknown]
  - Dry mouth [Unknown]
  - Chronic graft versus host disease [Unknown]
  - Rash [Unknown]
  - Rash maculo-papular [Unknown]
  - Gait disturbance [Unknown]
  - Haemoglobin decreased [Unknown]
  - Myopathy [Unknown]
  - Rhonchi [Unknown]
  - Heart rate increased [Unknown]
  - Dry eye [Unknown]
  - Platelet count decreased [Unknown]
